FAERS Safety Report 15612918 (Version 2)
Quarter: 2018Q4

REPORT INFORMATION
  Report Type: Spontaneous
  Country: JP (occurrence: JP)
  Receive Date: 20181113
  Receipt Date: 20181212
  Transmission Date: 20190205
  Serious: Yes (Disabling)
  Sender: FDA-Public Use
  Company Number: JP-ELI_LILLY_AND_COMPANY-JP201811000581AA

PATIENT
  Age: 60 Year
  Sex: Male
  Weight: 73 kg

DRUGS (6)
  1. CYRAMZA [Suspect]
     Active Substance: RAMUCIRUMAB
     Dosage: 6.4 MG/KG, SINGLE
     Route: 042
     Dates: start: 20181016, end: 20181016
  2. MIYA-BM [Concomitant]
     Active Substance: CLOSTRIDIUM BUTYRICUM SPORES STRAIN M-55
     Indication: FAECES SOFT
     Dosage: 3 G, DAILY
     Route: 048
     Dates: start: 20180904
  3. ABRAXANE [Concomitant]
     Active Substance: PACLITAXEL
     Dosage: 80 MG/M2, SINGLE
     Route: 042
     Dates: start: 20181016, end: 20181016
  4. CYRAMZA [Suspect]
     Active Substance: RAMUCIRUMAB
     Indication: GASTRIC CANCER STAGE IV
     Dosage: 8 MG/KG, CYCLICAL
     Route: 042
     Dates: start: 20181002
  5. TAKECAB [Concomitant]
     Active Substance: VONOPRAZAN FUMURATE
     Indication: GASTRIC ULCER
     Dosage: 10 MG, DAILY
     Route: 048
     Dates: start: 20171019
  6. ABRAXANE [Concomitant]
     Active Substance: PACLITAXEL
     Indication: GASTRIC CANCER STAGE IV
     Dosage: 100 MG/M2, CYCLICAL
     Route: 042
     Dates: start: 20181002

REACTIONS (2)
  - Osteonecrosis of jaw [Not Recovered/Not Resolved]
  - Neutrophil count decreased [Unknown]

NARRATIVE: CASE EVENT DATE: 20181016
